FAERS Safety Report 10402862 (Version 1)
Quarter: 2014Q3

REPORT INFORMATION
  Report Type: Spontaneous
  Country: CN (occurrence: CN)
  Receive Date: 20140822
  Receipt Date: 20140822
  Transmission Date: 20150326
  Serious: Yes (Life-Threatening, Other)
  Sender: FDA-Public Use
  Company Number: CN-BAXTER-2014BAX049206

PATIENT
  Age: 68 Year
  Sex: Male
  Weight: 64 kg

DRUGS (2)
  1. LIFEIN [Suspect]
     Active Substance: INVESTIGATIONAL PRODUCT
     Indication: CHEMOTHERAPY
     Route: 041
     Dates: start: 20140304, end: 20140304
  2. 0.9% SODIUM CHLORIDE INJECTION [Suspect]
     Active Substance: SODIUM CHLORIDE
     Indication: MEDICATION DILUTION
     Route: 041
     Dates: start: 20140304, end: 20140304

REACTIONS (4)
  - Dyspnoea [Recovering/Resolving]
  - Wheezing [Unknown]
  - Chest discomfort [Recovering/Resolving]
  - Asphyxia [Unknown]

NARRATIVE: CASE EVENT DATE: 20140304
